FAERS Safety Report 21071010 (Version 1)
Quarter: 2022Q3

REPORT INFORMATION
  Report Type: Spontaneous
  Country: FR (occurrence: FR)
  Receive Date: 20220712
  Receipt Date: 20220712
  Transmission Date: 20221026
  Serious: Yes (Other)
  Sender: FDA-Public Use
  Company Number: FR-PAIPHARMA-2022-FR-000122

PATIENT
  Age: 49 Year
  Sex: Male

DRUGS (2)
  1. LEVETIRACETAM [Suspect]
     Active Substance: LEVETIRACETAM
     Indication: Epilepsy
     Dosage: 1000 MG TWICE DAILY
  2. PREGABALIN [Suspect]
     Active Substance: PREGABALIN
     Indication: Epilepsy
     Dosage: 100 MG TWICE DAILY

REACTIONS (2)
  - Nicotinic acid deficiency [Recovered/Resolved]
  - Decreased appetite [Recovered/Resolved]
